FAERS Safety Report 12202384 (Version 4)
Quarter: 2016Q2

REPORT INFORMATION
  Report Type: Report from Study
  Country: US (occurrence: US)
  Receive Date: 20160322
  Receipt Date: 20160609
  Transmission Date: 20160815
  Serious: Yes (Hospitalization)
  Sender: FDA-Public Use
  Company Number: PHEH2016US006820

PATIENT
  Age: 31 Year
  Sex: Female

DRUGS (11)
  1. BACLOFEN. [Concomitant]
     Active Substance: BACLOFEN
     Indication: PAIN IN EXTREMITY
  2. ENOXAPARIN [Concomitant]
     Active Substance: ENOXAPARIN
     Dosage: 40 MG, QD
     Route: 065
  3. GABAPENTIN. [Concomitant]
     Active Substance: GABAPENTIN
     Indication: PAIN IN EXTREMITY
     Dosage: 1200 MG, Q8H
     Route: 048
  4. GILENYA [Suspect]
     Active Substance: FINGOLIMOD HYDROCHLORIDE
     Indication: PRIMARY PROGRESSIVE MULTIPLE SCLEROSIS
     Dosage: 0.5 MG, QD
     Route: 048
     Dates: start: 20160316, end: 20160318
  5. BACLOFEN. [Concomitant]
     Active Substance: BACLOFEN
     Indication: MUSCLE SPASMS
     Dosage: 15 MG, QID
     Route: 048
  6. CARBAMAZEPINE. [Concomitant]
     Active Substance: CARBAMAZEPINE
     Indication: PRODUCT USED FOR UNKNOWN INDICATION
     Dosage: 1 DF, BID
     Route: 048
  7. ACETAMINOPHEN. [Concomitant]
     Active Substance: ACETAMINOPHEN
     Indication: PAIN IN EXTREMITY
     Dosage: 2 DF, QD (EVERY 4 HOURS AS NEEDED)
     Route: 048
  8. GABAPENTIN. [Concomitant]
     Active Substance: GABAPENTIN
     Indication: MUSCLE SPASMS
  9. METHADONE [Suspect]
     Active Substance: METHADONE HYDROCHLORIDE
     Indication: PAIN
     Dosage: 30 MG, TID. 3 TABLETS EVERY MORNING, AFTERNOON ABD EVENING
     Route: 048
  10. MARIJUANA [Concomitant]
     Active Substance: CANNABIS SATIVA SUBSP. INDICA TOP
     Indication: PAIN
     Route: 065
  11. CANNABIS [Concomitant]
     Active Substance: CANNABIS SATIVA SUBSP. INDICA TOP
     Indication: PRODUCT USED FOR UNKNOWN INDICATION
     Dosage: MULTIPLE TIMES DAILY
     Route: 065

REACTIONS (22)
  - Nausea [Unknown]
  - Bradycardia [Recovered/Resolved]
  - Gait disturbance [Unknown]
  - Heart rate irregular [Unknown]
  - Dyspnoea [Unknown]
  - Back pain [Unknown]
  - Chromatopsia [Unknown]
  - Crying [Unknown]
  - Non-cardiac chest pain [Recovered/Resolved]
  - Movement disorder [Unknown]
  - Photophobia [Unknown]
  - Drug ineffective [Unknown]
  - Drug dependence [Unknown]
  - Emotional distress [Unknown]
  - Blood calcium decreased [Unknown]
  - Pain in extremity [Unknown]
  - Fall [Unknown]
  - Limb discomfort [Unknown]
  - Allodynia [Unknown]
  - Palpitations [Not Recovered/Not Resolved]
  - Concomitant disease aggravated [Unknown]
  - Product use issue [Unknown]

NARRATIVE: CASE EVENT DATE: 20160316
